FAERS Safety Report 12858694 (Version 2)
Quarter: 2017Q1

REPORT INFORMATION
  Report Type: Spontaneous
  Country: PL (occurrence: PL)
  Receive Date: 20161018
  Receipt Date: 20170105
  Transmission Date: 20170428
  Serious: Yes (Death, Other)
  Sender: FDA-Public Use
  Company Number: PL-TELIGENT, INC-IGIL20160283

PATIENT
  Age: 4 Year
  Sex: Male

DRUGS (2)
  1. ZINACEF [Suspect]
     Active Substance: CEFUROXIME SODIUM
     Indication: VOMITING
  2. ZINACEF [Suspect]
     Active Substance: CEFUROXIME SODIUM
     Indication: TONSILLITIS
     Route: 030
     Dates: start: 20160929, end: 20160929

REACTIONS (7)
  - Cardiac arrest [Recovered/Resolved]
  - Pneumonitis [Unknown]
  - Respiratory arrest [Unknown]
  - Choking [Fatal]
  - Loss of consciousness [Unknown]
  - Vomiting [Unknown]
  - Coma [Unknown]

NARRATIVE: CASE EVENT DATE: 20160929
